FAERS Safety Report 6888912-0 (Version None)
Quarter: 2010Q3

REPORT INFORMATION
  Report Type: 
  Country: None (occurrence: None)
  Receive Date: 20100730
  Receipt Date: 20071120
  Transmission Date: 20110219
  Serious: No
  Sender: FDA-Public Use
  Company Number: US-PFIZER INC-2007098578

PATIENT
  Sex: Male
  Weight: 145.45 kg

DRUGS (9)
  1. LIPITOR [Suspect]
     Indication: BLOOD CHOLESTEROL INCREASED
     Dates: start: 19970101
  2. METFORMIN HCL [Concomitant]
     Indication: DIABETES MELLITUS
  3. EFFEXOR [Concomitant]
     Indication: HYPERTENSION
  4. TOPROL-XL [Concomitant]
     Indication: HYPERTENSION
  5. PREVACID [Concomitant]
     Indication: GASTROOESOPHAGEAL REFLUX DISEASE
  6. QUINAPRIL [Concomitant]
     Indication: THYROID DISORDER
  7. LEVOXYL [Concomitant]
     Indication: THYROID DISORDER
  8. SITAGLIPTIN [Concomitant]
     Indication: DIABETES MELLITUS
  9. ACETYLSALICYLIC ACID SRT [Concomitant]

REACTIONS (1)
  - HYPERGLYCAEMIA [None]
